FAERS Safety Report 6468823-5 (Version None)
Quarter: 2009Q4

REPORT INFORMATION
  Report Type: 
  Country: None (occurrence: None)
  Receive Date: 20091203
  Receipt Date: 20080624
  Transmission Date: 20100525
  Serious: Yes (Other)
  Sender: FDA-Public Use
  Company Number: US-ELI_LILLY_AND_COMPANY-US200605003904

PATIENT
  Age: 73 Year
  Sex: Male

DRUGS (4)
  1. CYMBALTA [Suspect]
     Indication: DIABETIC NEUROPATHY
     Dosage: 120 MG, UNK
     Dates: start: 20051101
  2. PROZAC [Concomitant]
     Indication: DIABETIC NEUROPATHY
  3. NEUROTON [Concomitant]
     Indication: NEUROPATHY PERIPHERAL
  4. BETA BLOCKING AGENTS AND OTHER ANTIHYPERTENSI [Concomitant]
     Indication: HYPERTENSION

REACTIONS (3)
  - CIRRHOSIS ALCOHOLIC [None]
  - ENCEPHALOPATHY [None]
  - HEPATIC ENZYME INCREASED [None]
